FAERS Safety Report 6324585-3 (Version None)
Quarter: 2009Q3

REPORT INFORMATION
  Report Type: 
  Country: None (occurrence: None)
  Receive Date: 20090824
  Receipt Date: 20090513
  Transmission Date: 20100115
  Serious: No
  Sender: FDA-Public Use
  Company Number: US-ABBOTT-09P-163-0572626-00

PATIENT
  Sex: Female

DRUGS (11)
  1. NIASPAN [Suspect]
     Indication: HIGH DENSITY LIPOPROTEIN DECREASED
     Dosage: EVERY NIGHT
     Route: 048
     Dates: start: 20090401
  2. NIASPAN [Suspect]
     Indication: BLOOD TRIGLYCERIDES INCREASED
  3. ASPIRIN [Concomitant]
     Indication: DRUG USE FOR UNKNOWN INDICATION
     Dosage: EVERY MORNING
     Route: 048
  4. VYTORIN [Concomitant]
     Indication: DRUG USE FOR UNKNOWN INDICATION
     Dosage: 10/40 MG EVERY MORNING
     Route: 048
  5. ISORBIDE [Concomitant]
     Indication: DRUG USE FOR UNKNOWN INDICATION
  6. PLAVIX [Concomitant]
     Indication: DRUG USE FOR UNKNOWN INDICATION
  7. FLUOXETINE [Concomitant]
     Indication: DRUG USE FOR UNKNOWN INDICATION
  8. ATENOLOL [Concomitant]
     Indication: DRUG USE FOR UNKNOWN INDICATION
  9. TRILIPIX [Concomitant]
     Indication: DRUG USE FOR UNKNOWN INDICATION
  10. VITAMIN D [Concomitant]
     Indication: DRUG USE FOR UNKNOWN INDICATION
  11. VITAMIN B-12 [Concomitant]
     Indication: DRUG USE FOR UNKNOWN INDICATION

REACTIONS (3)
  - POLLAKIURIA [None]
  - URINE ABNORMALITY [None]
  - URINE ODOUR ABNORMAL [None]
